FAERS Safety Report 12763747 (Version 1)
Quarter: 2016Q3

REPORT INFORMATION
  Report Type: Spontaneous
  Country: None (occurrence: US)
  Receive Date: 20160920
  Receipt Date: 20160920
  Transmission Date: 20161109
  Serious: Yes (Other)
  Sender: FDA-Public Use
  Company Number: US-INDIANA BOTANIC GARDENS, INC.-1057496

PATIENT

DRUGS (2)
  1. HOMEOPATHIC RINGING EAR FORMULA [Suspect]
     Active Substance: HOMEOPATHICS
  2. HOMEOPATHIC BLADDER CONFIDENCE TABLETS [Suspect]
     Active Substance: HOMEOPATHICS

REACTIONS (3)
  - Paralysis [None]
  - Seizure [None]
  - Migraine [None]
